FAERS Safety Report 8359717-9 (Version None)
Quarter: 2012Q2

REPORT INFORMATION
  Report Type: 
  Country: None (occurrence: None)
  Receive Date: 20120515
  Receipt Date: 20120503
  Transmission Date: 20120825
  Serious: Yes (Other)
  Sender: FDA-Public Use
  Company Number: US-JNJFOC-20120506333

PATIENT
  Sex: Female
  Weight: 59.88 kg

DRUGS (1)
  1. ORTHO-NOVUM 1/35 [Suspect]
     Indication: CONTRACEPTION
     Route: 048
     Dates: start: 20120301, end: 20120301

REACTIONS (6)
  - BURNING SENSATION [None]
  - INAPPROPRIATE SCHEDULE OF DRUG ADMINISTRATION [None]
  - DRUG PRESCRIBING ERROR [None]
  - RASH [None]
  - VAGINAL HAEMORRHAGE [None]
  - PRURITUS [None]
